FAERS Safety Report 10924098 (Version 1)
Quarter: 2015Q1

REPORT INFORMATION
  Report Type: Spontaneous
  Country: US (occurrence: US)
  Receive Date: 20150318
  Receipt Date: 20150318
  Transmission Date: 20150721
  Serious: No
  Sender: FDA-Public Use
  Company Number: US-AMGEN-USASP2015024644

PATIENT

DRUGS (4)
  1. RAYOS [Concomitant]
     Active Substance: PREDNISONE
     Dosage: UNK
  2. SULFASALAZINE. [Concomitant]
     Active Substance: SULFASALAZINE
     Dosage: UNK
  3. METHOTREXATE (METHOTREXATE SODIUM) [Concomitant]
     Active Substance: METHOTREXATE SODIUM
     Dosage: UNK
  4. ENBREL [Suspect]
     Active Substance: ETANERCEPT
     Indication: PRODUCT USED FOR UNKNOWN INDICATION
     Dosage: UNK
     Route: 065

REACTIONS (7)
  - Musculoskeletal chest pain [Unknown]
  - Back pain [Unknown]
  - Diarrhoea [Unknown]
  - Muscle spasms [Unknown]
  - Abdominal pain upper [Recovering/Resolving]
  - Constipation [Unknown]
  - Arthralgia [Unknown]
